FAERS Safety Report 12560854 (Version 1)
Quarter: 2016Q3

REPORT INFORMATION
  Report Type: Spontaneous
  Country: US (occurrence: None)
  Receive Date: 20160714
  Receipt Date: 20160714
  Transmission Date: 20161109
  Serious: Yes (Life-Threatening, Hospitalization)
  Sender: FDA-Public Use
  Company Number: None

PATIENT
  Age: 78 Year
  Sex: Female
  Weight: 71.67 kg

DRUGS (8)
  1. FISH OIL [Concomitant]
     Active Substance: FISH OIL
  2. TRAMADOL. [Concomitant]
     Active Substance: TRAMADOL
  3. VITAMIN D3 [Concomitant]
     Active Substance: CHOLECALCIFEROL
  4. LEVEMIR [Concomitant]
     Active Substance: INSULIN DETEMIR
  5. REPATHA [Suspect]
     Active Substance: EVOLOCUMAB
     Indication: LOW DENSITY LIPOPROTEIN INCREASED
     Route: 058
     Dates: start: 20160419, end: 20160621
  6. CARVEDILOL. [Concomitant]
     Active Substance: CARVEDILOL
  7. ASPIRIN. [Concomitant]
     Active Substance: ASPIRIN
  8. COENZYME Q10 [Concomitant]
     Active Substance: UBIDECARENONE

REACTIONS (3)
  - Cerebrovascular accident [None]
  - Carotid artery thrombosis [None]
  - Cerebral artery thrombosis [None]

NARRATIVE: CASE EVENT DATE: 20160629
